FAERS Safety Report 5993532-6 (Version None)
Quarter: 2008Q4

REPORT INFORMATION
  Report Type: 
  Country: None (occurrence: None)
  Receive Date: 20081212
  Receipt Date: 20081203
  Transmission Date: 20090506
  Serious: Yes (Other)
  Sender: FDA-Public Use
  Company Number: US-JNJFOC-20081201151

PATIENT
  Sex: Female

DRUGS (2)
  1. REMICADE [Suspect]
     Dosage: PRN THERAPY AS NEEDED FOR 1 1/2 YEARS
     Route: 042
  2. REMICADE [Suspect]
     Indication: RHEUMATOID ARTHRITIS
     Dosage: MAINTENANCE THERAPY FOR 1 1/2 YEARS
     Route: 042

REACTIONS (1)
  - HISTOPLASMOSIS [None]
